FAERS Safety Report 9202444 (Version 1)
Quarter: 2013Q2

REPORT INFORMATION
  Report Type: Report from Study
  Country: US (occurrence: US)
  Receive Date: 20130401
  Receipt Date: 20130401
  Transmission Date: 20140414
  Serious: Yes (Other)
  Sender: FDA-Public Use
  Company Number: PHHO2007US13969

PATIENT
  Sex: Female
  Weight: 76.6 kg

DRUGS (1)
  1. SOM230 [Suspect]
     Indication: ACROMEGALY
     Dosage: 400 MCG, BID
     Route: 058
     Dates: start: 20050503

REACTIONS (5)
  - Cholecystitis chronic [Unknown]
  - Adenocarcinoma of colon [Unknown]
  - Colon adenoma [Unknown]
  - Tumour invasion [Unknown]
  - Mucosal ulceration [Unknown]
